FAERS Safety Report 11994547 (Version 1)
Quarter: 2016Q1

REPORT INFORMATION
  Report Type: Spontaneous
  Country: US (occurrence: US)
  Receive Date: 20160203
  Receipt Date: 20160203
  Transmission Date: 20160526
  Serious: No
  Sender: FDA-Public Use
  Company Number: US-UCBSA-2015034614

PATIENT
  Sex: Male

DRUGS (1)
  1. KEPPRA [Suspect]
     Active Substance: LEVETIRACETAM
     Indication: PRODUCT USED FOR UNKNOWN INDICATION

REACTIONS (8)
  - Memory impairment [Unknown]
  - Unevaluable event [Unknown]
  - Fatigue [Unknown]
  - Hypersomnia [Unknown]
  - Abnormal dreams [Unknown]
  - Insomnia [Unknown]
  - Amnesia [Unknown]
  - Disorientation [Unknown]
